FAERS Safety Report 9869951 (Version 1)
Quarter: 2014Q1

REPORT INFORMATION
  Report Type: Spontaneous
  Country: US (occurrence: None)
  Receive Date: 20140131
  Receipt Date: 20140131
  Transmission Date: 20141002
  Serious: No
  Sender: FDA-Public Use
  Company Number: FK201400275

PATIENT
  Age: 84 Year
  Sex: Female

DRUGS (7)
  1. MILRINONE [Suspect]
     Indication: PROPHYLAXIS
     Dosage: 0.25 UG/KG MINUTE,
  2. SILDENAFIL(REVATIO)(SILDENAFIL CITRATE) [Suspect]
     Route: 048
  3. CARPERITIDE [Suspect]
     Indication: PROPHYLAXIS
     Dosage: .02 UG/KG/MINUTE
  4. WARFARIN(WARFARIN) [Concomitant]
  5. HEPARIN(HEPARIN) [Concomitant]
  6. WARFARIN(WARFARIN [Concomitant]
  7. HEPARIN(HEPARIN [Concomitant]

REACTIONS (2)
  - Drug interaction [None]
  - Hypotension [None]
